FAERS Safety Report 24894183 (Version 2)
Quarter: 2025Q1

REPORT INFORMATION
  Report Type: Spontaneous
  Country: PK (occurrence: PK)
  Receive Date: 20250128
  Receipt Date: 20250326
  Transmission Date: 20250409
  Serious: Yes (Other)
  Sender: AMGEN
  Company Number: PK-PFIZER INC-PV202500008822

PATIENT
  Age: 66 Year
  Sex: Female
  Weight: 72 kg

DRUGS (8)
  1. ENBREL [Suspect]
     Active Substance: ETANERCEPT
     Indication: Rheumatoid arthritis
     Dosage: 50 MG, WEEKLY
     Route: 058
  2. METHOTREXATE [Concomitant]
     Active Substance: METHOTREXATE
     Indication: Product used for unknown indication
     Dosage: 12.5 MG, WEEKLY (2CC/50 MG)
     Route: 065
  3. METHOTREXATE [Concomitant]
     Active Substance: METHOTREXATE
     Route: 065
  4. Famot [Concomitant]
     Indication: Product used for unknown indication
     Route: 065
  5. Onset [Concomitant]
     Indication: Product used for unknown indication
     Route: 065
  6. FOLIC ACID [Concomitant]
     Active Substance: FOLIC ACID
     Indication: Product used for unknown indication
     Dosage: 5 MG, 1X/DAY (1+0+0+0 OFF MTX DAY)
     Route: 065
  7. POTASSIUM BICARBONATE\SODIUM ALGINATE [Concomitant]
     Active Substance: POTASSIUM BICARBONATE\SODIUM ALGINATE
     Indication: Abdominal discomfort
     Dosage: UNK, 2X/DAY (2+0+2+0)
     Route: 065
  8. POTASSIUM BICARBONATE\SODIUM ALGINATE [Concomitant]
     Active Substance: POTASSIUM BICARBONATE\SODIUM ALGINATE
     Indication: Pain
     Route: 065

REACTIONS (10)
  - Osteoarthritis [Unknown]
  - Body mass index increased [Unknown]
  - Blood immunoglobulin A decreased [Unknown]
  - Blood immunoglobulin G decreased [Unknown]
  - Fatigue [Unknown]
  - Rheumatoid lung [Unknown]
  - Renal cyst [Unknown]
  - Hiatus hernia [Unknown]
  - Osteoporosis [Unknown]
  - Off label use [Unknown]

NARRATIVE: CASE EVENT DATE: 20240101
